FAERS Safety Report 8886973 (Version 2)
Quarter: 2012Q4

REPORT INFORMATION
  Report Type: 
  Country: US (occurrence: US)
  Receive Date: 20121105
  Receipt Date: 20121212
  Transmission Date: 20130627
  Serious: No
  Sender: FDA-Public Use
  Company Number: US-PFIZER INC-2012268836

PATIENT
  Sex: Male

DRUGS (5)
  1. NEURONTIN [Suspect]
     Indication: DIABETIC PERIPHERAL NEUROPATHIC PAIN
     Dosage: 300 mg
  2. NEURONTIN [Suspect]
     Dosage: 600 mg, as needed
  3. IBUPROFEN [Suspect]
     Dosage: UNK
  4. GABAPENTIN [Suspect]
     Indication: DIABETIC PERIPHERAL NEUROPATHIC PAIN
     Dosage: 600 mg, as needed
     Dates: start: 201210
  5. CYCLOBENZAPRINE HYDROCHLORIDE [Concomitant]
     Indication: FIBROMYALGIA
     Dosage: 10 mg, daily

REACTIONS (7)
  - Drug ineffective [Unknown]
  - Neuralgia [Unknown]
  - Amnesia [Unknown]
  - Insomnia [Unknown]
  - Burning sensation [Not Recovered/Not Resolved]
  - Paraesthesia [Not Recovered/Not Resolved]
  - Pain [Not Recovered/Not Resolved]
